FAERS Safety Report 18941320 (Version 1)
Quarter: 2021Q1

REPORT INFORMATION
  Report Type: Spontaneous
  Country: GB (occurrence: GB)
  Receive Date: 20210225
  Receipt Date: 20210225
  Transmission Date: 20210420
  Serious: Yes (Hospitalization)
  Sender: FDA-Public Use
  Company Number: GB-PERRIGO-21GB002251

PATIENT
  Age: 86 Year
  Sex: Female

DRUGS (9)
  1. SOLIFENACIN [Concomitant]
     Active Substance: SOLIFENACIN
     Dosage: 10 MG, QD
  2. FELODIPINE. [Concomitant]
     Active Substance: FELODIPINE
     Dosage: 2.5 MG, QD
  3. LEVOTHYROXINE. [Concomitant]
     Active Substance: LEVOTHYROXINE
     Dosage: 25 ?G, TID
  4. PARACETAMOL [Suspect]
     Active Substance: ACETAMINOPHEN
     Indication: PRODUCT USED FOR UNKNOWN INDICATION
     Dosage: 500 MG, PRN; 2 TABLETS QID WHEN REQUIRED
     Route: 065
  5. ATORVASTATIN [Suspect]
     Active Substance: ATORVASTATIN
     Indication: PRODUCT USED FOR UNKNOWN INDICATION
     Dosage: 20 MG, QD
     Route: 065
  6. NITROFURANTOIN. [Suspect]
     Active Substance: NITROFURANTOIN
     Indication: PRODUCT USED FOR UNKNOWN INDICATION
     Route: 065
  7. CLOPIDOGREL [Concomitant]
     Active Substance: CLOPIDOGREL BISULFATE
     Dosage: 75 MG; IN MORNING
  8. SPIRONOLACTONE. [Concomitant]
     Active Substance: SPIRONOLACTONE
     Dosage: 100 MG, QD
  9. LACTULOSE. [Concomitant]
     Active Substance: LACTULOSE
     Dosage: 10 ML, BID

REACTIONS (2)
  - Liver function test abnormal [Unknown]
  - Hyponatraemia [Unknown]
